FAERS Safety Report 9077712 (Version 1)
Quarter: 2013Q1

REPORT INFORMATION
  Report Type: Report from Study
  Country: US (occurrence: US)
  Receive Date: 20130130
  Receipt Date: 20130130
  Transmission Date: 20140127
  Serious: No
  Sender: FDA-Public Use
  Company Number: US-ABBOTT-12P-163-0966998-00

PATIENT
  Age: 25 Year
  Sex: Female

DRUGS (4)
  1. HUMIRA 40 MG/0.8 ML PEN [Suspect]
     Indication: CROHN^S DISEASE
     Dosage: LOADING DOSE
     Route: 058
     Dates: start: 20120807, end: 20120807
  2. HUMIRA 40 MG/0.8 ML PEN [Suspect]
     Route: 058
  3. AZATHIOPRINE [Concomitant]
     Indication: CROHN^S DISEASE
     Dosage: 3 TABLETS
  4. CITOLAPRAM [Concomitant]
     Indication: DEPRESSION
     Dosage: 20MG 2  EVERY PM

REACTIONS (1)
  - Injection site pain [Recovered/Resolved]
